FAERS Safety Report 13264427 (Version 1)
Quarter: 2017Q1

REPORT INFORMATION
  Report Type: Spontaneous
  Country: FR (occurrence: FR)
  Receive Date: 20170223
  Receipt Date: 20170223
  Transmission Date: 20170428
  Serious: Yes (Hospitalization)
  Sender: FDA-Public Use
  Company Number: FR-JNJFOC-20170214291

PATIENT
  Age: 61 Year
  Sex: Female

DRUGS (5)
  1. IMBRUVICA [Suspect]
     Active Substance: IBRUTINIB
     Indication: CHRONIC LYMPHOCYTIC LEUKAEMIA
     Dosage: 50 CAPSULES OF 140 MG (50 DOSES)
     Route: 048
     Dates: start: 20170126
  2. ZOPICLONE [Suspect]
     Active Substance: ZOPICLONE
     Indication: PRODUCT USED FOR UNKNOWN INDICATION
     Dosage: 1 BOX 1 TOTAL
     Route: 048
     Dates: start: 20170126
  3. IMBRUVICA [Suspect]
     Active Substance: IBRUTINIB
     Indication: CHRONIC LYMPHOCYTIC LEUKAEMIA
     Route: 048
     Dates: start: 201701
  4. LERCAN [Concomitant]
     Active Substance: LERCANIDIPINE
     Route: 065
  5. HAVLANE [Concomitant]
     Active Substance: LOPRAZOLAM
     Route: 065

REACTIONS (2)
  - Poisoning deliberate [Unknown]
  - No adverse event [Unknown]

NARRATIVE: CASE EVENT DATE: 20170126
